FAERS Safety Report 7264140-4 (Version None)
Quarter: 2011Q1

REPORT INFORMATION
  Report Type: 
  Country: None (occurrence: None)
  Receive Date: 20110131
  Receipt Date: 20110119
  Transmission Date: 20110831
  Serious: Yes (Hospitalization, Other)
  Sender: FDA-Public Use
  Company Number: US-BIOGENIDEC-2010BI024364

PATIENT
  Age: 37 Year
  Sex: Female

DRUGS (6)
  1. VALTREX [Concomitant]
  2. TYSABRI [Suspect]
     Indication: MULTIPLE SCLEROSIS
     Route: 042
     Dates: start: 20090326, end: 20100428
  3. IRON [Concomitant]
  4. PRENATAL VITAMINS [Concomitant]
  5. VESICARE [Concomitant]
  6. ZOFRAN [Concomitant]

REACTIONS (2)
  - THROMBOSIS [None]
  - HYSTERECTOMY [None]
